FAERS Safety Report 4502639-1 (Version None)
Quarter: 2004Q4

REPORT INFORMATION
  Report Type: 
  Country: None (occurrence: None)
  Receive Date: 20041110
  Receipt Date: 20040930
  Transmission Date: 20050328
  Serious: No
  Sender: FDA-Public Use
  Company Number: 8986

PATIENT
  Age: 69 Year
  Sex: Female

DRUGS (10)
  1. LEUCOVORIN [Suspect]
     Indication: COLON CANCER
     Dosage: 75 MG , PO
     Route: 048
     Dates: start: 20040703, end: 20040703
  2. LEUCOVORIN [Suspect]
     Indication: METASTASES TO LIVER
     Dosage: 75 MG , PO
     Route: 048
     Dates: start: 20040703, end: 20040703
  3. TEGAFUR URACIL [Suspect]
     Indication: COLON CANCER
     Dosage: 400 MG PO
     Route: 048
     Dates: start: 20040703, end: 20040703
  4. TEGAFUR URACIL [Suspect]
     Indication: METASTASES TO LUNG
     Dosage: 400 MG PO
     Route: 048
     Dates: start: 20040703, end: 20040703
  5. SULPIRIDE [Concomitant]
  6. IFENPRODIL [Concomitant]
  7. LEVOGLUTAMIDE/SODIUM GUALENATE [Concomitant]
  8. FLUNITRAZEPAM [Concomitant]
  9. RILMAZAFONE [Concomitant]
  10. PRAVASTATIN [Concomitant]

REACTIONS (1)
  - DIARRHOEA [None]
